FAERS Safety Report 9199221 (Version 1)
Quarter: 2013Q1

REPORT INFORMATION
  Report Type: Spontaneous
  Country: US (occurrence: None)
  Receive Date: 20130325
  Receipt Date: 20130325
  Transmission Date: 20140127
  Serious: No
  Sender: FDA-Public Use
  Company Number: 2013US-004595

PATIENT
  Sex: Male

DRUGS (1)
  1. OMONTYS (PEGINESATIDE) SOLUTION FOR INJECTION [Suspect]
     Indication: NEPHROGENIC ANAEMIA
     Dates: start: 20130212, end: 20130212

REACTIONS (4)
  - Hyperhidrosis [None]
  - Dyspnoea [None]
  - Abdominal discomfort [None]
  - Chest pain [None]
